FAERS Safety Report 5357356-5 (Version None)
Quarter: 2007Q2

REPORT INFORMATION
  Report Type: 
  Country: None (occurrence: None)
  Receive Date: 20070614
  Receipt Date: 20070611
  Transmission Date: 20071010
  Serious: Yes (Other)
  Sender: FDA-Public Use
  Company Number: A0655558A

PATIENT
  Age: 17 Month
  Sex: Female
  Weight: 11 kg

DRUGS (2)
  1. SERETIDE [Suspect]
     Indication: BRONCHITIS
     Dosage: 3PUFF PER DAY
     Route: 055
     Dates: start: 20070407
  2. BUDECORT [Concomitant]
     Dates: start: 20070407

REACTIONS (2)
  - BRONCHITIS [None]
  - PHARMACEUTICAL PRODUCT COMPLAINT [None]
